FAERS Safety Report 17895670 (Version 2)
Quarter: 2020Q2

REPORT INFORMATION
  Report Type: Spontaneous
  Country: US (occurrence: US)
  Receive Date: 20200615
  Receipt Date: 20200617
  Transmission Date: 20200714
  Serious: No
  Sender: FDA-Public Use
  Company Number: NVSC2020US165902

PATIENT
  Age: 31 Year
  Sex: Female

DRUGS (1)
  1. SIGNIFOR [Suspect]
     Active Substance: PASIREOTIDE DIASPARTATE
     Indication: CUSHING^S SYNDROME
     Dosage: 0.6 MG, BID
     Route: 065

REACTIONS (1)
  - Hypersensitivity [Unknown]
